FAERS Safety Report 7803287-8 (Version None)
Quarter: 2011Q4

REPORT INFORMATION
  Report Type: 
  Country: None (occurrence: None)
  Receive Date: 20111007
  Receipt Date: 20110926
  Transmission Date: 20120403
  Serious: Yes (Death, Life-Threatening, Hospitalization, Disabling, Other)
  Sender: FDA-Public Use
  Company Number: US-BAYER-2011-063486

PATIENT
  Age: 65 Year
  Sex: Male
  Weight: 103.87 kg

DRUGS (11)
  1. RIVAROXABAN [Suspect]
     Indication: ACUTE CORONARY SYNDROME
     Dosage: 2.5 MG, BID
     Route: 048
     Dates: start: 20100204, end: 20110609
  2. CLOPIDOGREL [Interacting]
     Indication: ACUTE CORONARY SYNDROME
  3. LIPITOR [Concomitant]
  4. NITROGLYCERIN [Concomitant]
  5. ACETYLSALICYLIC ACID SRT [Interacting]
     Indication: ACUTE CORONARY SYNDROME
     Dates: start: 20100205
  6. AZOPT [Concomitant]
  7. COMBIGAN [Concomitant]
  8. LOPRESSOR [Concomitant]
  9. XALATAN [Concomitant]
  10. MULTI-VITAMIN [Concomitant]
  11. ALTACE [Concomitant]

REACTIONS (2)
  - RECTAL HAEMORRHAGE [None]
  - AORTO-DUODENAL FISTULA [None]
